FAERS Safety Report 20337967 (Version 1)
Quarter: 2022Q1

REPORT INFORMATION
  Report Type: Other
  Country: US (occurrence: US)
  Receive Date: 20220114
  Receipt Date: 20220114
  Transmission Date: 20220424
  Serious: No
  Sender: FDA-Public Use
  Company Number: US-Covis Pharma GmbH-2021COV24448

PATIENT
  Age: 32 Year
  Sex: Female

DRUGS (1)
  1. MAKENA [Suspect]
     Active Substance: HYDROXYPROGESTERONE CAPROATE
     Indication: Premature delivery
     Route: 058

REACTIONS (6)
  - Burning sensation [Unknown]
  - Limb discomfort [Unknown]
  - Hypoaesthesia [Unknown]
  - Pain [Unknown]
  - Sluggishness [Unknown]
  - Pruritus [Unknown]
